FAERS Safety Report 21519031 (Version 2)
Quarter: 2022Q4

REPORT INFORMATION
  Report Type: Other
  Country: GB (occurrence: GB)
  Receive Date: 20221028
  Receipt Date: 20221108
  Transmission Date: 20230113
  Serious: Yes (Hospitalization, Other)
  Sender: FDA-Public Use
  Company Number: None

PATIENT

DRUGS (3)
  1. GABAPENTIN [Suspect]
     Active Substance: GABAPENTIN
     Indication: Product used for unknown indication
     Dosage: 300 MILLIGRAM
     Route: 065
  2. GABAPENTIN [Suspect]
     Active Substance: GABAPENTIN
     Indication: Product used for unknown indication
     Dosage: 100 MILLIGRAM
     Route: 065
  3. OLANZAPINE [Suspect]
     Active Substance: OLANZAPINE
     Indication: Psychotic disorder
     Dosage: UNK
     Route: 048

REACTIONS (21)
  - Intestinal perforation [Unknown]
  - Eye disorder [Unknown]
  - Bone pain [Unknown]
  - Large intestinal ulcer [Unknown]
  - Deafness unilateral [Unknown]
  - Hypotension [Unknown]
  - Colitis ischaemic [Unknown]
  - Sepsis [Unknown]
  - Cellulitis [Unknown]
  - Vitamin D deficiency [Unknown]
  - Feeling abnormal [Unknown]
  - Anal incontinence [Unknown]
  - Tooth fracture [Unknown]
  - Madarosis [Unknown]
  - Tooth injury [Unknown]
  - Pain [Recovering/Resolving]
  - Acute kidney injury [Unknown]
  - Headache [Unknown]
  - Alopecia [Unknown]
  - Drug withdrawal syndrome [Unknown]
  - Urinary tract infection [Unknown]
